FAERS Safety Report 6291571-1 (Version None)
Quarter: 2009Q3

REPORT INFORMATION
  Report Type: 
  Country: None (occurrence: None)
  Receive Date: 20090730
  Receipt Date: 20090720
  Transmission Date: 20100115
  Serious: Yes (Life-Threatening, Hospitalization, Other)
  Sender: FDA-Public Use
  Company Number: FR-ELI_LILLY_AND_COMPANY-FR200907004292

PATIENT
  Age: 43 Year
  Sex: Male

DRUGS (6)
  1. ZYPREXA [Suspect]
     Indication: SCHIZOPHRENIA
     Dosage: 10 MG, DAILY (1/D)
     Route: 048
     Dates: end: 20090525
  2. HYPNOVEL [Concomitant]
     Indication: SEDATION
     Route: 042
     Dates: start: 20090525, end: 20090525
  3. HALDOL [Concomitant]
     Indication: SCHIZOPHRENIA
     Route: 048
     Dates: end: 20090525
  4. TEMESTA [Concomitant]
     Indication: MENTAL DISORDER
     Dosage: 2.5 MG, UNK
     Route: 048
     Dates: end: 20090525
  5. SUBUTEX [Concomitant]
     Indication: SCHIZOPHRENIA
     Dates: end: 20090525
  6. CHLORAMINOPHENE [Concomitant]

REACTIONS (5)
  - ACUTE RESPIRATORY FAILURE [None]
  - BRONCHIAL OBSTRUCTION [None]
  - CEREBROVASCULAR ACCIDENT [None]
  - ISCHAEMIC STROKE [None]
  - PLEURAL EFFUSION [None]
